FAERS Safety Report 6190435-1 (Version None)
Quarter: 2009Q2

REPORT INFORMATION
  Report Type: 
  Country: None (occurrence: None)
  Receive Date: 20090514
  Receipt Date: 20090511
  Transmission Date: 20091009
  Serious: Yes (Other)
  Sender: FDA-Public Use
  Company Number: GR-BRISTOL-MYERS SQUIBB COMPANY-14623037

PATIENT
  Age: 79 Year
  Sex: Male

DRUGS (3)
  1. HYDROXYCARBAMIDE [Suspect]
     Indication: MYELOFIBROSIS
  2. CLOPIDOGREL BISULFATE [Suspect]
     Dosage: 1DF=MEAN DAILY DOSE 1.5MG
  3. ANAGRELIDE HCL [Suspect]
     Indication: MYELOFIBROSIS

REACTIONS (2)
  - ANAEMIA [None]
  - HAEMATURIA [None]
